FAERS Safety Report 5321328-7 (Version None)
Quarter: 2007Q2

REPORT INFORMATION
  Report Type: 
  Country: None (occurrence: None)
  Receive Date: 20070507
  Receipt Date: 20070507
  Transmission Date: 20071010
  Serious: Yes (Death)
  Sender: FDA-Public Use
  Company Number: None

PATIENT
  Sex: Female

DRUGS (3)
  1. FLUDARABINE PHOSPHATE [Suspect]
     Indication: ACUTE MYELOID LEUKAEMIA
     Dosage: 60 MG DAILY IV DRIP
     Route: 041
     Dates: start: 20040409, end: 20040413
  2. MELPHALAN [Suspect]
     Indication: ACUTE MYELOID LEUKAEMIA
     Dosage: 270 MG DAILY IV DRIP
     Route: 041
     Dates: start: 20040414, end: 20040414
  3. CAMPATH [Concomitant]

REACTIONS (10)
  - ANOREXIA [None]
  - DIARRHOEA [None]
  - GRAFT VERSUS HOST DISEASE [None]
  - INFECTION [None]
  - MULTI-ORGAN FAILURE [None]
  - NAUSEA [None]
  - PNEUMATOSIS [None]
  - PORTAL VENOUS GAS [None]
  - SMALL INTESTINAL OBSTRUCTION [None]
  - VOMITING [None]
